FAERS Safety Report 9513820 (Version 1)
Quarter: 2013Q3

REPORT INFORMATION
  Report Type: Spontaneous
  Country: US (occurrence: US)
  Receive Date: 20130910
  Receipt Date: 20130910
  Transmission Date: 20140515
  Serious: No
  Sender: FDA-Public Use
  Company Number: US-PFIZER INC-2013260134

PATIENT
  Sex: 0

DRUGS (4)
  1. ENBREL [Suspect]
     Dosage: UNK
     Route: 065
  2. METHOTREXATE SODIUM [Suspect]
  3. CIMZIA [Suspect]
  4. ACTEMRA [Suspect]

REACTIONS (2)
  - Drug ineffective [Unknown]
  - Drug effect incomplete [Unknown]
